FAERS Safety Report 17675334 (Version 1)
Quarter: 2020Q2

REPORT INFORMATION
  Report Type: Spontaneous
  Country: US (occurrence: US)
  Receive Date: 20200415
  Receipt Date: 20200415
  Transmission Date: 20200714
  Serious: Yes (Other)
  Sender: FDA-Public Use
  Company Number: None

PATIENT
  Age: 61 Year
  Sex: Female
  Weight: 65.25 kg

DRUGS (7)
  1. FLECAINIDE [Concomitant]
     Active Substance: FLECAINIDE
  2. STOOL SOFTENER (DOCUSATE) [Concomitant]
     Active Substance: DOCUSATE
  3. FIBER [Concomitant]
     Active Substance: PSYLLIUM HUSK
  4. OXYCODONE-ACETAMINOPHEN 10/325 [Suspect]
     Active Substance: ACETAMINOPHEN\OXYCODONE HYDROCHLORIDE
     Indication: CANCER PAIN
     Route: 048
     Dates: start: 20200212, end: 20200409
  5. ELIQUIS [Concomitant]
     Active Substance: APIXABAN
  6. CANE [Concomitant]
  7. ATENOLOL. [Concomitant]
     Active Substance: ATENOLOL

REACTIONS (6)
  - Product quality issue [None]
  - Headache [None]
  - Respiratory disorder [None]
  - Diarrhoea [None]
  - Product substitution issue [None]
  - Drug dependence [None]

NARRATIVE: CASE EVENT DATE: 20200212
